FAERS Safety Report 7521925-4 (Version None)
Quarter: 2011Q2

REPORT INFORMATION
  Report Type: 
  Country: None (occurrence: None)
  Receive Date: 20110603
  Receipt Date: 20110520
  Transmission Date: 20111010
  Serious: Yes (Hospitalization, Other)
  Sender: FDA-Public Use
  Company Number: US-ELI_LILLY_AND_COMPANY-US201007003667

PATIENT
  Sex: Female

DRUGS (13)
  1. KLONOPIN [Concomitant]
     Dosage: 1.5 MG, UNK
     Route: 065
  2. FORTEO [Suspect]
     Indication: OSTEOPOROSIS
     Dosage: 20 UG, DAILY (1/D)
     Dates: start: 20090101
  3. FORTEO [Suspect]
     Dosage: 20 UG, QD
     Route: 065
  4. FORTEO [Suspect]
     Dosage: 20 UG, QD
     Route: 065
  5. VITAMIN B-12 [Concomitant]
     Route: 065
  6. NYSTATIN [Concomitant]
     Route: 065
  7. TYLENOL                                 /SCH/ [Concomitant]
     Dosage: UNK, PRN
     Route: 065
  8. RADIOACTIVE IODINE SOLUTION [Concomitant]
     Indication: HYPERTHYROIDISM
     Route: 065
  9. LEXAPRO [Concomitant]
     Dosage: 10 MG, BID
     Route: 065
  10. RESTORIL [Concomitant]
     Dosage: 7.5 MG, UNK
     Route: 065
  11. PLAQUENIL [Concomitant]
     Indication: SYSTEMIC LUPUS ERYTHEMATOSUS
  12. PREDNISONE [Concomitant]
  13. VITAMIN D [Concomitant]
     Route: 065

REACTIONS (28)
  - BONE DISORDER [None]
  - OROPHARYNGEAL PAIN [None]
  - OEDEMA PERIPHERAL [None]
  - BLOOD POTASSIUM DECREASED [None]
  - DELIRIUM [None]
  - THROMBOSIS [None]
  - GAIT DISTURBANCE [None]
  - BALANCE DISORDER [None]
  - CATARACT [None]
  - JOINT DISLOCATION [None]
  - ORAL PAIN [None]
  - ERYTHEMA [None]
  - HYPERTENSION [None]
  - INSOMNIA [None]
  - ARTHROPATHY [None]
  - TINNITUS [None]
  - THYROID DISORDER [None]
  - TOOTH FRACTURE [None]
  - ARTHRALGIA [None]
  - GENERAL PHYSICAL HEALTH DETERIORATION [None]
  - DIARRHOEA [None]
  - WEIGHT DECREASED [None]
  - SYSTEMIC LUPUS ERYTHEMATOSUS [None]
  - DRUG HYPERSENSITIVITY [None]
  - TOOTHACHE [None]
  - TOOTH DISORDER [None]
  - VISUAL ACUITY REDUCED [None]
  - MASS [None]
